FAERS Safety Report 11442361 (Version 1)
Quarter: 2015Q3

REPORT INFORMATION
  Report Type: Spontaneous
  Country: DE (occurrence: DE)
  Receive Date: 20150901
  Receipt Date: 20150901
  Transmission Date: 20151125
  Serious: Yes (Hospitalization)
  Sender: FDA-Public Use
  Company Number: DE-GILEAD-2015-0169857

PATIENT
  Age: 87 Year
  Sex: Male
  Weight: 70 kg

DRUGS (2)
  1. RITUXIMAB [Suspect]
     Active Substance: RITUXIMAB
     Indication: B-CELL SMALL LYMPHOCYTIC LYMPHOMA
     Dosage: UNK
     Route: 065
     Dates: end: 201404
  2. ZYDELIG [Suspect]
     Active Substance: IDELALISIB
     Indication: B-CELL SMALL LYMPHOCYTIC LYMPHOMA
     Dosage: 150 MG, BID
     Route: 048
     Dates: start: 20141204, end: 20150615

REACTIONS (4)
  - Eczema [Unknown]
  - Dermatitis exfoliative [Unknown]
  - Eczema asteatotic [Unknown]
  - Fluid retention [Unknown]

NARRATIVE: CASE EVENT DATE: 20150615
